FAERS Safety Report 5208677-8 (Version None)
Quarter: 2007Q1

REPORT INFORMATION
  Report Type: 
  Country: None (occurrence: None)
  Receive Date: 20070116
  Receipt Date: 20070105
  Transmission Date: 20070707
  Serious: Yes (Hospitalization)
  Sender: FDA-Public Use
  Company Number: PHRM2007FR00464

PATIENT
  Age: 50 Year
  Sex: Female
  Weight: 48 kg

DRUGS (3)
  1. ZOMETA [Suspect]
     Indication: MULTIPLE MYELOMA
     Dates: start: 20021001, end: 20041001
  2. AREDIA [Suspect]
     Indication: MULTIPLE MYELOMA
     Dates: start: 19980701, end: 20020201
  3. CORTICOSTEROIDS [Concomitant]
     Indication: MULTIPLE MYELOMA

REACTIONS (6)
  - GINGIVAL SWELLING [None]
  - OSTEONECROSIS [None]
  - SEQUESTRECTOMY [None]
  - SURGERY [None]
  - TOOTH EXTRACTION [None]
  - TOOTHACHE [None]
